FAERS Safety Report 24185035 (Version 1)
Quarter: 2024Q3

REPORT INFORMATION
  Report Type: Spontaneous
  Country: US (occurrence: None)
  Receive Date: 20240807
  Receipt Date: 20240807
  Transmission Date: 20241016
  Serious: No
  Sender: Public
  Company Number: None

PATIENT
  Sex: Female

DRUGS (18)
  1. COSENTYX [Suspect]
     Active Substance: SECUKINUMAB
  2. CELECOXIB [Concomitant]
  3. clindamycin/bpo gel [Concomitant]
  4. FLUCONAZOLE [Concomitant]
  5. FLUTICASONE [Concomitant]
  6. FOLIC ACID [Concomitant]
  7. HYDROXYZINE [Concomitant]
  8. meclizine [Concomitant]
  9. MELOXICAM [Concomitant]
  10. METHOTREXATE [Concomitant]
  11. NAPROXEN [Concomitant]
  12. nurtec [Concomitant]
  13. OMEPRAZOLE [Concomitant]
  14. OZEMPIC [Concomitant]
  15. PHENTERMINE [Concomitant]
  16. PREDNISONE [Concomitant]
  17. SERTRALINE [Concomitant]
  18. SPIRONOLACTONE [Concomitant]

REACTIONS (1)
  - Drug ineffective [None]
